FAERS Safety Report 8167796-7 (Version None)
Quarter: 2012Q1

REPORT INFORMATION
  Report Type: 
  Country: None (occurrence: None)
  Receive Date: 20120227
  Receipt Date: 20120215
  Transmission Date: 20120608
  Serious: Yes (Other)
  Sender: FDA-Public Use
  Company Number: CA-ROCHE-GNE295324

PATIENT
  Age: 24 Year
  Sex: Female

DRUGS (15)
  1. MOMETASONE FUROATE [Concomitant]
  2. OMEPRAZOLE [Concomitant]
  3. CALCIUM [Concomitant]
  4. CITALOPRAM HYDROBROMIDE [Concomitant]
  5. MULTIVITAMIN - UNSPECIFIED [Concomitant]
  6. ADVAIR DISKUS 100/50 [Concomitant]
  7. IPRATROPIUM BROMIDE [Concomitant]
  8. IMMUNE GLOBULIN NOS [Concomitant]
  9. CETIRIZINE [Concomitant]
  10. RANITIDINE [Concomitant]
  11. VITAMIN D [Concomitant]
  12. XOLAIR [Suspect]
     Indication: PRODUCT USED FOR UNKNOWN INDICATION
  13. ALBUTEROL [Concomitant]
  14. FLOVENT [Concomitant]
  15. ALENDRONATE SODIUM [Concomitant]

REACTIONS (3)
  - DIFFERENTIAL WHITE BLOOD CELL COUNT ABNORMAL [None]
  - INFECTION [None]
  - NEUTROPHILIA [None]
